FAERS Safety Report 9772555 (Version 2)
Quarter: 2013Q4

REPORT INFORMATION
  Report Type: Spontaneous
  Country: DE (occurrence: DE)
  Receive Date: 20131219
  Receipt Date: 20131219
  Transmission Date: 20140711
  Serious: Yes (Other)
  Sender: FDA-Public Use
  Company Number: DE-THROMBOGENICS NV-JET-2013-276

PATIENT
  Sex: Female

DRUGS (1)
  1. JETREA [Suspect]
     Indication: VITREOUS ADHESIONS
     Dosage: 0.125 MG, ONE TIME DOSE
     Route: 031
     Dates: start: 20130828, end: 20130828

REACTIONS (3)
  - Macular hole [Not Recovered/Not Resolved]
  - Disease progression [Not Recovered/Not Resolved]
  - Visual acuity reduced [Not Recovered/Not Resolved]
